FAERS Safety Report 4472031-7 (Version None)
Quarter: 2004Q3

REPORT INFORMATION
  Report Type: 
  Country: None (occurrence: None)
  Receive Date: 20040909
  Receipt Date: 20040604
  Transmission Date: 20050211
  Serious: Yes (Hospitalization, Other)
  Sender: FDA-Public Use
  Company Number: F03200400056

PATIENT
  Age: 60 Year
  Sex: Female
  Weight: 73.4827 kg

DRUGS (9)
  1. OXALIPLATIN-SOLUTION [Suspect]
     Indication: COLORECTAL CANCER METASTATIC
     Dosage: 85MG/KG Q2W-INTRAVENOUS NOS
     Route: 042
     Dates: start: 20040225, end: 20040227
  2. FLUOROURACIL [Concomitant]
  3. LEUCOVORIN [Concomitant]
  4. PTK787/ZK 222584 VS. PLACEBO [Concomitant]
  5. PHENYTOIN SODIUM [Concomitant]
  6. PROMETHAZINE HCL [Concomitant]
  7. VALDECOXIB [Concomitant]
  8. LEVOFLOXACIN [Concomitant]
  9. ACETAMINOPHEN AND HYDROCODONE BITARTRATE [Concomitant]

REACTIONS (4)
  - HEADACHE [None]
  - POST PROCEDURAL NAUSEA [None]
  - VERTIGO [None]
  - VOMITING [None]
